FAERS Safety Report 5740399-7 (Version None)
Quarter: 2008Q2

REPORT INFORMATION
  Report Type: 
  Country: None (occurrence: None)
  Receive Date: 20080516
  Receipt Date: 20080514
  Transmission Date: 20081010
  Serious: Yes (Other)
  Sender: FDA-Public Use
  Company Number: ES-ASTRAZENECA-2008AC01224

PATIENT
  Age: 23 Year
  Sex: Female

DRUGS (3)
  1. ZOLMITRIPTAN [Suspect]
     Indication: MIGRAINE WITH AURA
     Dosage: 5 MG
     Route: 048
  2. SODIUM NAPROXEN [Concomitant]
     Indication: MIGRAINE WITH AURA
     Dosage: 550-110 MG
  3. FLUNARIZINE [Concomitant]
     Indication: MIGRAINE WITH AURA

REACTIONS (2)
  - MUSCLE SPASMS [None]
  - MYALGIA [None]
